FAERS Safety Report 6702010-8 (Version None)
Quarter: 2010Q2

REPORT INFORMATION
  Report Type: 
  Country: None (occurrence: None)
  Receive Date: 20100429
  Receipt Date: 20100419
  Transmission Date: 20101027
  Serious: Yes (Other)
  Sender: FDA-Public Use
  Company Number: JP-PFIZER INC-2010048753

PATIENT
  Age: 46 Year
  Sex: Female

DRUGS (4)
  1. LIPITOR [Suspect]
     Indication: HYPERCHOLESTEROLAEMIA
     Dosage: 10 MG, 1X/DAY
     Route: 048
     Dates: start: 20100326, end: 20100409
  2. FAMOTIDINE [Concomitant]
     Route: 048
     Dates: start: 20100326
  3. KAKKONTOU [Concomitant]
     Dosage: UNK
     Route: 048
     Dates: start: 20100326
  4. DEPAS [Concomitant]
     Dosage: UNK
     Route: 048
     Dates: start: 20100326

REACTIONS (2)
  - HYPOAESTHESIA [None]
  - HYPOAESTHESIA FACIAL [None]
